FAERS Safety Report 6135085-8 (Version None)
Quarter: 2009Q1

REPORT INFORMATION
  Report Type: 
  Country: None (occurrence: None)
  Receive Date: 20090327
  Receipt Date: 20090319
  Transmission Date: 20090719
  Serious: Yes (Hospitalization)
  Sender: FDA-Public Use
  Company Number: FR-ASTRAZENECA-2009CG00559

PATIENT
  Age: 75 Year
  Sex: Male

DRUGS (13)
  1. CRESTOR [Suspect]
     Indication: THROMBOSIS PROPHYLAXIS
     Route: 048
     Dates: start: 20090310, end: 20090317
  2. PREVISCAN [Concomitant]
     Indication: THROMBOSIS PROPHYLAXIS
     Route: 048
  3. METFORMIN HCL [Concomitant]
     Indication: TYPE 2 DIABETES MELLITUS
     Route: 048
  4. DIFFU K [Concomitant]
     Route: 048
  5. DIGOXIN [Concomitant]
     Route: 048
  6. ALLOPURINOL [Concomitant]
     Route: 048
  7. BECLOJET [Concomitant]
     Route: 007
  8. ENALAPRIL [Concomitant]
     Route: 048
  9. BURINEX [Concomitant]
     Route: 048
  10. VENTOLIN [Concomitant]
     Route: 007
  11. ZOPICLONE [Concomitant]
     Route: 048
  12. BROMAZEPAM [Concomitant]
     Route: 048
  13. LACTULOSE [Concomitant]
     Route: 048

REACTIONS (1)
  - PURPURA [None]
